FAERS Safety Report 6273418-2 (Version None)
Quarter: 2009Q3

REPORT INFORMATION
  Report Type: 
  Country: None (occurrence: None)
  Receive Date: 20090713
  Receipt Date: 20080916
  Transmission Date: 20100115
  Serious: Yes (Other)
  Sender: FDA-Public Use
  Company Number: 586679

PATIENT
  Age: 54 Year
  Sex: Female
  Weight: 45.8 kg

DRUGS (6)
  1. BONIVA [Suspect]
     Indication: OSTEOPOROSIS
     Dosage: 150 MG 1 PER MONTH ORAL
     Route: 048
     Dates: start: 20080804, end: 20080903
  2. CLIMARA PRO [Concomitant]
  3. MULTIVITAMIN NOS (MULTIVITAMIN NOS) [Concomitant]
  4. CALCIUM (CALCIUM) [Concomitant]
  5. VITAMINE D (VITAMIN D NOS) [Concomitant]
  6. COSAMIN DS (CHONDROITIN SULFATE/GLUCOSAMINE/MANGANESE ASCORBATE) [Concomitant]

REACTIONS (5)
  - CHEST PAIN [None]
  - DEHYDRATION [None]
  - FATIGUE [None]
  - OESOPHAGITIS ULCERATIVE [None]
  - PYREXIA [None]
